FAERS Safety Report 6402595-5 (Version None)
Quarter: 2009Q4

REPORT INFORMATION
  Report Type: 
  Country: None (occurrence: None)
  Receive Date: 20091009
  Receipt Date: 20090930
  Transmission Date: 20100525
  Serious: Yes (Other)
  Sender: FDA-Public Use
  Company Number: ADR34812009

PATIENT
  Age: 56 Year
  Sex: Male

DRUGS (5)
  1. CIPROFLOXACIN [Suspect]
     Indication: INFECTION
     Dosage: 400 MG; INTRAVENOUS
     Route: 042
     Dates: start: 20070227, end: 20070227
  2. CHLORDIAZEPOXIDE [Concomitant]
  3. ENOXAPARIN SODIUM [Concomitant]
  4. IPRATROPIUM [Concomitant]
  5. ALBUTEROL [Concomitant]

REACTIONS (3)
  - HYPOTENSION [None]
  - TREMOR [None]
  - WHEEZING [None]
